FAERS Safety Report 8790857 (Version 1)
Quarter: 2012Q4

REPORT INFORMATION
  Report Type: Spontaneous
  Country: US (occurrence: None)
  Receive Date: 20120913
  Receipt Date: 20120913
  Transmission Date: 20130627
  Serious: Yes (Other)
  Sender: FDA-Public Use
  Company Number: None

PATIENT
  Age: 55 Year
  Sex: Female
  Weight: 48.99 kg

DRUGS (1)
  1. HYDROXYCHLOROQUINE [Suspect]
     Indication: OSTEOARTHRITIS
     Dosage: 200 MG ONE TABLET PER DAY PO
     Route: 048
     Dates: start: 20110413, end: 20111128

REACTIONS (4)
  - Gingival inflammation [None]
  - Gingival recession [None]
  - Dry mouth [None]
  - Tooth fracture [None]
